FAERS Safety Report 14196547 (Version 1)
Quarter: 2017Q4

REPORT INFORMATION
  Report Type: Spontaneous
  Country: US (occurrence: US)
  Receive Date: 20171116
  Receipt Date: 20171116
  Transmission Date: 20180321
  Serious: No
  Sender: FDA-Public Use
  Company Number: US-ALLERGAN-1727121US

PATIENT
  Sex: Female

DRUGS (1)
  1. ENABLEX [Suspect]
     Active Substance: DARIFENACIN HYDROBROMIDE
     Indication: STRESS URINARY INCONTINENCE
     Dosage: 15 MG, QD
     Route: 065
     Dates: start: 20170606

REACTIONS (1)
  - Drug ineffective [Unknown]
